FAERS Safety Report 11848125 (Version 4)
Quarter: 2019Q2

REPORT INFORMATION
  Report Type: Spontaneous
  Country: US (occurrence: US)
  Receive Date: 20151217
  Receipt Date: 20190402
  Transmission Date: 20190711
  Serious: Yes (Other)
  Sender: FDA-Public Use
  Company Number: US-PFIZER INC-2015438919

PATIENT
  Age: 76 Year
  Sex: Male

DRUGS (1)
  1. LIPITOR [Suspect]
     Active Substance: ATORVASTATIN CALCIUM
     Dosage: 1 DF, 3X/DAY
     Route: 048
     Dates: start: 20100325

REACTIONS (3)
  - Drug hypersensitivity [Unknown]
  - Hepatitis [Unknown]
  - Liver disorder [Unknown]
